FAERS Safety Report 9364621 (Version 1)
Quarter: 2013Q2

REPORT INFORMATION
  Report Type: Spontaneous
  Country: IL (occurrence: IL)
  Receive Date: 20130624
  Receipt Date: 20130624
  Transmission Date: 20140414
  Serious: Yes (Death, Hospitalization)
  Sender: FDA-Public Use
  Company Number: IL-SANOFI-AVENTIS-2013SA060979

PATIENT
  Age: 71 Year
  Sex: Male

DRUGS (7)
  1. TAXOTERE [Suspect]
     Indication: PROSTATE CANCER
     Dosage: 9 TREATMENTS (DOSE: 30 MG/M2) WEEKLY REGIMEN
     Route: 042
     Dates: start: 20130317, end: 20130516
  2. TAXOTERE [Suspect]
     Indication: PROSTATE CANCER
     Dosage: 9 TREATMENTS (DOSE: 30 MG/M2) WEEKLY REGIMEN
     Route: 042
     Dates: start: 20130317, end: 20130516
  3. TAXOTERE [Suspect]
     Indication: PROSTATE CANCER
     Dosage: 9 TREATMENTS (DOSE: 30 MG/M2) WEEKLY REGIMEN
     Route: 042
     Dates: start: 20130317, end: 20130516
  4. PREDNISONE [Concomitant]
     Indication: PROSTATE CANCER
     Dosage: DOSE: 5 MG 2/DAY
     Route: 065
  5. TRITACE [Concomitant]
     Route: 065
  6. ASPIRIN [Concomitant]
     Route: 065
  7. ELTROXIN [Concomitant]
     Route: 065

REACTIONS (4)
  - Interstitial lung disease [Fatal]
  - Respiratory failure [Fatal]
  - Upper respiratory tract infection [Unknown]
  - Mycoplasma infection [Unknown]
